FAERS Safety Report 12631275 (Version 2)
Quarter: 2016Q3

REPORT INFORMATION
  Report Type: Spontaneous
  Country: US (occurrence: US)
  Receive Date: 20160808
  Receipt Date: 20160808
  Transmission Date: 20161109
  Serious: No
  Sender: FDA-Public Use
  Company Number: US-BEH-2015053136

PATIENT
  Sex: Female
  Weight: 63 kg

DRUGS (21)
  1. VITAMINS AND MINERALS [Concomitant]
  2. ARGININE [Concomitant]
     Active Substance: ARGININE
  3. ASPIRIN. [Concomitant]
     Active Substance: ASPIRIN
  4. HIZENTRA [Suspect]
     Active Substance: HUMAN IMMUNOGLOBULIN G
     Indication: HYPER IGM SYNDROME
     Dosage: 4 GM 20 ML VIAL
     Route: 058
  5. HIZENTRA [Suspect]
     Active Substance: HUMAN IMMUNOGLOBULIN G
     Indication: HYPER IGM SYNDROME
     Dosage: 4 GM 20 ML VIAL
     Route: 058
  6. MOTRIN [Concomitant]
     Active Substance: IBUPROFEN
  7. CALCIUM [Concomitant]
     Active Substance: CALCIUM
  8. NITRO-DUR [Concomitant]
     Active Substance: NITROGLYCERIN
  9. POTASSIUM [Concomitant]
     Active Substance: POTASSIUM
  10. SALINE [Concomitant]
     Active Substance: SODIUM CHLORIDE
  11. PROZAC [Concomitant]
     Active Substance: FLUOXETINE HYDROCHLORIDE
  12. DIPHENHYDRAMINE. [Concomitant]
     Active Substance: DIPHENHYDRAMINE
  13. CLONIDINE. [Concomitant]
     Active Substance: CLONIDINE
  14. CYANOCOBALAMIN. [Concomitant]
     Active Substance: CYANOCOBALAMIN
  15. SYNTHROID [Concomitant]
     Active Substance: LEVOTHYROXINE SODIUM
  16. LMX [Concomitant]
     Active Substance: LIDOCAINE
  17. HEPARIN [Concomitant]
     Active Substance: HEPARIN SODIUM
  18. CLONAZEPAM. [Concomitant]
     Active Substance: CLONAZEPAM
  19. TYLENOL [Concomitant]
     Active Substance: ACETAMINOPHEN
  20. EPIPEN [Concomitant]
     Active Substance: EPINEPHRINE
  21. FEMARA [Concomitant]
     Active Substance: LETROZOLE

REACTIONS (2)
  - Erythema [Unknown]
  - Local swelling [Unknown]
